FAERS Safety Report 8822385 (Version 1)
Quarter: 2012Q4

REPORT INFORMATION
  Report Type: 
  Country: HR (occurrence: HR)
  Receive Date: 20121003
  Receipt Date: 20121003
  Transmission Date: 20130627
  Serious: Yes (Other)
  Sender: FDA-Public Use
  Company Number: HR-COVIDIEN/TYCO HEALTHCARE/MALLINCKRODT-T201203524

PATIENT
  Age: 49 Year
  Sex: Female

DRUGS (2)
  1. SODIUM IODIDE (I 131) [Suspect]
     Indication: RADIOTHERAPY
     Dosage: 21 mCi, single
     Route: 065
  2. SODIUM IODIDE (I 131) [Suspect]
     Dosage: 8 mCi, single
     Route: 065

REACTIONS (2)
  - Basedow^s disease [Recovered/Resolved]
  - Hypothyroidism [Not Recovered/Not Resolved]
